FAERS Safety Report 6393819-1 (Version None)
Quarter: 2009Q4

REPORT INFORMATION
  Report Type: 
  Country: None (occurrence: None)
  Receive Date: 20091008
  Receipt Date: 20090818
  Transmission Date: 20100525
  Serious: Yes (Hospitalization)
  Sender: FDA-Public Use
  Company Number: US-PFIZER INC-2009252757

PATIENT
  Sex: Female
  Weight: 89.9 kg

DRUGS (22)
  1. SILDENAFIL CITRATE [Suspect]
     Indication: PULMONARY HYPERTENSION
     Dosage: 20 MG, 3X/DAY
     Route: 048
     Dates: start: 20080925, end: 20081104
  2. SILDENAFIL CITRATE [Suspect]
     Dosage: 40 MG, 3X/DAY
     Dates: start: 20081104, end: 20081211
  3. SILDENAFIL CITRATE [Suspect]
     Dosage: 80 MG, 3X/DAY
     Dates: start: 20081211, end: 20090205
  4. SILDENAFIL CITRATE [Suspect]
     Dosage: 20 MG, 3X/DAY
     Route: 048
     Dates: start: 20090205, end: 20090519
  5. SILDENAFIL CITRATE [Suspect]
     Dosage: 40 MG, 3X/DAY
     Route: 048
     Dates: start: 20090519, end: 20090625
  6. SILDENAFIL CITRATE [Suspect]
     Dosage: 80 MG, 3X/DAY
     Route: 048
     Dates: start: 20090626, end: 20090731
  7. SILDENAFIL CITRATE [Suspect]
     Dosage: 40 MG, 3X/DAY
     Route: 048
     Dates: start: 20090731, end: 20090801
  8. SILDENAFIL CITRATE [Suspect]
     Dosage: 80 MG, 3X/DAY
     Route: 048
     Dates: start: 20090802, end: 20090803
  9. SILDENAFIL CITRATE [Suspect]
     Dosage: 40 MG, 3X/DAY
     Route: 048
     Dates: start: 20090804, end: 20090805
  10. FOLIC ACID [Concomitant]
     Indication: SICKLE CELL ANAEMIA
     Dosage: 1 MG, 1X/DAY
     Route: 048
  11. HYDROXYUREA [Concomitant]
     Indication: SICKLE CELL ANAEMIA
     Dosage: 2500 MG, 1X/DAY
     Route: 048
     Dates: start: 20071004
  12. LASIX [Concomitant]
     Indication: OEDEMA
     Dosage: 20 MG, 2X/DAY
     Route: 048
     Dates: start: 20071004
  13. LISINOPRIL [Concomitant]
     Indication: BLOOD PRESSURE
     Dosage: 10 MG, 1X/DAY
     Route: 048
  14. OXYCODONE [Concomitant]
     Indication: SICKLE CELL ANAEMIA
     Dosage: 15 MG, AS NEEDED
     Route: 048
  15. DILAUDID [Concomitant]
     Indication: SICKLE CELL ANAEMIA
     Dosage: UNK
     Route: 048
     Dates: start: 20071004
  16. DEFERASIROX [Concomitant]
     Indication: IRON OVERLOAD
     Dosage: 2500 MG, 1X/DAY
     Dates: start: 20080630
  17. DOCUSATE [Concomitant]
     Indication: CONSTIPATION
     Dosage: UNK
     Route: 048
     Dates: start: 20071205
  18. HYDROCHLOROTHIAZIDE [Concomitant]
     Indication: HYPERTENSION
     Dosage: 25 MG, 1X/DAY
     Route: 048
     Dates: start: 20061016
  19. PHENERGAN ^AVENTIS PHARMA^ [Concomitant]
     Indication: NAUSEA
     Dosage: 25 MG, AS NEEDED
     Route: 048
  20. SYNTHROID [Concomitant]
     Indication: HYPERTHYROIDISM
     Dosage: 125 MCG, 1X/DAY
     Route: 048
  21. OXYCONTIN [Concomitant]
     Indication: SICKLE CELL ANAEMIA
     Dosage: 100 MG, 1X/DAY
     Route: 048
  22. ERYTHROPOIETIN [Concomitant]
     Indication: ANAEMIA
     Dosage: 10000 UT,
     Route: 058
     Dates: start: 20090325

REACTIONS (1)
  - SICKLE CELL ANAEMIA WITH CRISIS [None]
